FAERS Safety Report 10485848 (Version 1)
Quarter: 2014Q4

REPORT INFORMATION
  Report Type: Spontaneous
  Country: US (occurrence: US)
  Receive Date: 20141001
  Receipt Date: 20141001
  Transmission Date: 20150528
  Serious: No
  Sender: FDA-Public Use
  Company Number: US-BIOGENIDEC-2014BI098191

PATIENT
  Sex: Female

DRUGS (1)
  1. TECFIDERA [Suspect]
     Active Substance: DIMETHYL FUMARATE
     Indication: MULTIPLE SCLEROSIS

REACTIONS (6)
  - Burning sensation [Recovered/Resolved]
  - Flushing [Recovered/Resolved]
  - Gastric disorder [Unknown]
  - Dizziness [Unknown]
  - Vomiting [Unknown]
  - Dyspepsia [Unknown]
